FAERS Safety Report 17276676 (Version 1)
Quarter: 2020Q1

REPORT INFORMATION
  Report Type: Spontaneous
  Country: GB (occurrence: GB)
  Receive Date: 20200116
  Receipt Date: 20200116
  Transmission Date: 20200409
  Serious: Yes (Death, Hospitalization)
  Sender: FDA-Public Use
  Company Number: GB-TEVA-2020-GB-1167700

PATIENT
  Age: 78 Year
  Sex: Female

DRUGS (1)
  1. ZOLEDRONIC ACID [Suspect]
     Active Substance: ZOLEDRONIC ACID
     Indication: OSTEOPOROSIS
     Dosage: 5 MILLIGRAM
     Route: 042
     Dates: start: 20191111, end: 20191111

REACTIONS (3)
  - Hemiparesis [Fatal]
  - Cerebral infarction [Fatal]
  - Generalised tonic-clonic seizure [Fatal]

NARRATIVE: CASE EVENT DATE: 20191112
